FAERS Safety Report 4609598-1 (Version None)
Quarter: 2005Q1

REPORT INFORMATION
  Report Type: 
  Country: None (occurrence: None)
  Receive Date: 20050314
  Receipt Date: 20050301
  Transmission Date: 20050727
  Serious: Yes (Other)
  Sender: FDA-Public Use
  Company Number: GB-2005-002888

PATIENT
  Sex: Female

DRUGS (1)
  1. BETAFERON (INTERFERON BETA-1B) INJECTION, 250UG [Suspect]
     Dates: start: 19880101

REACTIONS (2)
  - CARCINOID TUMOUR PULMONARY [None]
  - LUNG CARCINOMA CELL TYPE UNSPECIFIED RECURRENT [None]
